FAERS Safety Report 4350506-9 (Version None)
Quarter: 2004Q2

REPORT INFORMATION
  Report Type: 
  Country: None (occurrence: None)
  Receive Date: 20040429
  Receipt Date: 20040429
  Transmission Date: 20050107
  Serious: No
  Sender: FDA-Public Use
  Company Number: None

PATIENT
  Age: 47 Year
  Weight: 78.9259 kg

DRUGS (3)
  1. CDDP 100 MG/M2 X 2 DOSES [Suspect]
     Indication: TONSIL CANCER
     Dosage: SEE IMAGE
     Dates: start: 20040219
  2. CDDP 100 MG/M2 X 2 DOSES [Suspect]
     Indication: TONSIL CANCER
     Dosage: SEE IMAGE
     Dates: start: 20040317
  3. . [Concomitant]

REACTIONS (3)
  - NEUTROPHIL COUNT DECREASED [None]
  - PYREXIA [None]
  - STOMATITIS [None]
